FAERS Safety Report 15133920 (Version 1)
Quarter: 2018Q3

REPORT INFORMATION
  Report Type: Spontaneous
  Country: US (occurrence: US)
  Receive Date: 20180712
  Receipt Date: 20180712
  Transmission Date: 20181010
  Serious: No
  Sender: FDA-Public Use
  Company Number: US-009507513-1806USA011439

PATIENT
  Age: 32 Year
  Sex: Female
  Weight: 77.1 kg

DRUGS (2)
  1. NUVARING [Suspect]
     Active Substance: ETHINYL ESTRADIOL\ETONOGESTREL
     Dosage: INSERT ONE RING FOR 3 WEEKS, AND ONE RING FREE WEEK
     Route: 067
     Dates: start: 20180621, end: 20180624
  2. NUVARING [Suspect]
     Active Substance: ETHINYL ESTRADIOL\ETONOGESTREL
     Indication: CONTRACEPTION
     Dosage: INSERT ONE RING FOR 3 WEEKS, AND ONE RING FREE WEEK
     Route: 067
     Dates: start: 201707

REACTIONS (3)
  - Device breakage [Recovered/Resolved]
  - Drug dose omission [Unknown]
  - Vulvovaginal discomfort [Recovered/Resolved]

NARRATIVE: CASE EVENT DATE: 201806
